FAERS Safety Report 10334227 (Version 1)
Quarter: 2014Q3

REPORT INFORMATION
  Report Type: Spontaneous
  Country: US (occurrence: None)
  Receive Date: 20140721
  Receipt Date: 20140721
  Transmission Date: 20150326
  Serious: Yes (Death)
  Sender: FDA-Public Use
  Company Number: KAD201407-000760

PATIENT
  Age: 52 Year
  Sex: Female

DRUGS (2)
  1. SOVALDI [Suspect]
     Active Substance: SOFOSBUVIR
     Indication: HEPATITIS C
     Route: 048
     Dates: start: 20140423, end: 20140616
  2. RIBASPHERE RIBAPAK [Suspect]
     Active Substance: RIBAVIRIN
     Indication: HEPATITIS C
     Dosage: TABLET, 600 MG AM AND 600 MG PM
     Route: 048
     Dates: start: 20140423, end: 20140616

REACTIONS (1)
  - Death [None]

NARRATIVE: CASE EVENT DATE: 20140616
